FAERS Safety Report 5372113-1 (Version None)
Quarter: 2007Q2

REPORT INFORMATION
  Report Type: 
  Country: None (occurrence: None)
  Receive Date: 20070627
  Receipt Date: 20070622
  Transmission Date: 20071010
  Serious: Yes (Hospitalization)
  Sender: FDA-Public Use
  Company Number: DE-ASTRAZENECA-2007PK01253

PATIENT
  Age: 53 Year
  Sex: Female

DRUGS (6)
  1. SEROQUEL [Suspect]
     Route: 048
     Dates: end: 20070429
  2. SEROQUEL [Suspect]
     Route: 048
     Dates: start: 20070430, end: 20070501
  3. SEROQUEL [Suspect]
     Route: 048
     Dates: start: 20070502, end: 20070507
  4. SEROQUEL [Suspect]
     Route: 048
     Dates: start: 20070508, end: 20070511
  5. SEROQUEL [Suspect]
     Route: 048
     Dates: start: 20070512, end: 20070514
  6. TAVOR [Concomitant]
     Route: 048
     Dates: start: 20070430, end: 20070503

REACTIONS (1)
  - HEPATIC ENZYME INCREASED [None]
